FAERS Safety Report 18732855 (Version 1)
Quarter: 2021Q1

REPORT INFORMATION
  Report Type: Spontaneous
  Country: US (occurrence: US)
  Receive Date: 20210113
  Receipt Date: 20210113
  Transmission Date: 20210419
  Serious: Yes (Hospitalization, Other)
  Sender: FDA-Public Use
  Company Number: US-AUROBINDO-AUR-APL-2021-001189

PATIENT
  Age: 77 Year
  Sex: Female

DRUGS (1)
  1. METFORMIN [Suspect]
     Active Substance: METFORMIN HYDROCHLORIDE
     Indication: TYPE 2 DIABETES MELLITUS
     Dosage: 1250 MILLIGRAM, TWO TIMES A DAY
     Route: 065

REACTIONS (8)
  - Confusional state [Recovered/Resolved]
  - Urine output decreased [Unknown]
  - Lactic acidosis [Recovered/Resolved]
  - Blindness [Recovered/Resolved]
  - Diarrhoea [Unknown]
  - Hypoglycaemia [Recovered/Resolved]
  - Nausea [Unknown]
  - Vomiting [Unknown]
